FAERS Safety Report 7335739-1 (Version None)
Quarter: 2011Q1

REPORT INFORMATION
  Report Type: 
  Country: None (occurrence: None)
  Receive Date: 20110307
  Receipt Date: 20110301
  Transmission Date: 20110831
  Serious: Yes (Other)
  Sender: FDA-Public Use
  Company Number: B0703886A

PATIENT

DRUGS (1)
  1. AMOXICILLIN AND CLAVULANATE POTASSIUM [Suspect]
     Indication: PHARYNGOTONSILLITIS
     Dosage: 625MG TWICE PER DAY
     Route: 048

REACTIONS (4)
  - PURULENT DISCHARGE [None]
  - DRUG INEFFECTIVE [None]
  - TONSILLITIS [None]
  - HYPERAEMIA [None]
